FAERS Safety Report 6645941-X (Version None)
Quarter: 2010Q1

REPORT INFORMATION
  Report Type: 
  Country: None (occurrence: None)
  Receive Date: 20100323
  Receipt Date: 20100311
  Transmission Date: 20100710
  Serious: Yes (Hospitalization, Other)
  Sender: FDA-Public Use
  Company Number: FR-BRISTOL-MYERS SQUIBB COMPANY-15022387

PATIENT
  Age: 59 Year
  Sex: Male

DRUGS (2)
  1. GLUCOVANCE [Suspect]
     Indication: DIABETES MELLITUS
     Dosage: MID DEC,1.5YRS AGO
     Dates: end: 20091201
  2. ACTOS [Suspect]
     Indication: DIABETES MELLITUS
     Dosage: MID DEC
     Dates: end: 20091201

REACTIONS (6)
  - ESCHAR [None]
  - FALL [None]
  - GASTROINTESTINAL HAEMORRHAGE [None]
  - MYOPATHY [None]
  - SHOCK HAEMORRHAGIC [None]
  - ULCER [None]
